FAERS Safety Report 5033318-2 (Version None)
Quarter: 2006Q2

REPORT INFORMATION
  Report Type: 
  Country: None (occurrence: None)
  Receive Date: 20060515
  Receipt Date: 20060124
  Transmission Date: 20061013
  Serious: No
  Sender: FDA-Public Use
  Company Number: S06-USA-00651-01

PATIENT
  Age: 85 Year
  Sex: Male

DRUGS (7)
  1. NAMENDA [Suspect]
     Indication: COGNITIVE DISORDER
     Dosage: 10 MG BID PO
     Route: 048
     Dates: start: 20050101, end: 20060101
  2. NAMENDA [Suspect]
     Indication: COGNITIVE DISORDER
     Dosage: 5 MG QD PO
     Route: 048
     Dates: start: 20051001, end: 20050101
  3. NAMENDA [Suspect]
     Indication: COGNITIVE DISORDER
     Dosage: 5 MG BID PO
     Route: 048
     Dates: start: 20050101, end: 20050101
  4. NAMENDA [Suspect]
     Indication: COGNITIVE DISORDER
     Dosage: 15 MG QD PO
     Route: 048
     Dates: start: 20050101, end: 20050101
  5. EXELON [Suspect]
     Indication: COGNITIVE DISORDER
     Dates: start: 20060101, end: 20060101
  6. EXELON [Suspect]
     Indication: COGNITIVE DISORDER
     Dates: start: 20060101
  7. MULTIPLE MEDICATIONS [Concomitant]

REACTIONS (1)
  - RASH [None]
